FAERS Safety Report 25032650 (Version 1)
Quarter: 2025Q1

REPORT INFORMATION
  Report Type: Spontaneous
  Country: US (occurrence: None)
  Receive Date: 20250303
  Receipt Date: 20250303
  Transmission Date: 20250409
  Serious: Yes (Hospitalization)
  Sender: FDA-CTU
  Company Number: None

PATIENT
  Age: 88 Year
  Sex: Female
  Weight: 60 kg

DRUGS (1)
  1. CEFEPIME [Suspect]
     Active Substance: CEFEPIME HYDROCHLORIDE
     Indication: Pneumonia
     Dates: start: 20250221, end: 20250226

REACTIONS (4)
  - Altered state of consciousness [None]
  - Unresponsive to stimuli [None]
  - Status epilepticus [None]
  - Neurotoxicity [None]

NARRATIVE: CASE EVENT DATE: 20250225
